FAERS Safety Report 7730030-3 (Version None)
Quarter: 2011Q3

REPORT INFORMATION
  Report Type: 
  Country: None (occurrence: None)
  Receive Date: 20110906
  Receipt Date: 20110824
  Transmission Date: 20111222
  Serious: Yes (Other)
  Sender: FDA-Public Use
  Company Number: PHHY2011JP29998

PATIENT
  Age: 57 Year
  Sex: Female

DRUGS (1)
  1. FEMARA [Suspect]
     Indication: ENDOCRINE DISORDER
     Route: 048

REACTIONS (5)
  - UTERINE LEIOMYOSARCOMA [None]
  - ENDOMETRIAL HYPERTROPHY [None]
  - ENDOMETRIAL METAPLASIA [None]
  - VAGINAL DISCHARGE [None]
  - ENDOMETRIAL HYPERPLASIA [None]
